FAERS Safety Report 21711117 (Version 4)
Quarter: 2023Q1

REPORT INFORMATION
  Report Type: Report from Study
  Country: US (occurrence: US)
  Receive Date: 20221212
  Receipt Date: 20230130
  Transmission Date: 20230417
  Serious: Yes (Hospitalization, Other)
  Sender: FDA-Public Use
  Company Number: US-GBT-018395

PATIENT
  Age: 17 Year
  Sex: Female

DRUGS (5)
  1. OXBRYTA [Suspect]
     Active Substance: VOXELOTOR
     Indication: Sickle cell disease
     Route: 048
     Dates: start: 20200609, end: 202209
  2. oxyCODONE IR (Roxicodone) [Concomitant]
     Indication: Sickle cell disease
     Dosage: TIME INTERVAL: AS NECESSARY
     Route: 048
     Dates: start: 20181016
  3. VITAMIN D3 [Concomitant]
     Active Substance: CHOLECALCIFEROL
     Indication: Vitamin D deficiency
     Dosage: DOSAGE: 1000 U
     Route: 048
     Dates: start: 20140224
  4. folic acid (FOLVITE) [Concomitant]
     Indication: Sickle cell disease
     Route: 048
     Dates: start: 20110927
  5. ROCEPHIN [Suspect]
     Active Substance: CEFTRIAXONE SODIUM
     Indication: Acute chest syndrome
     Route: 042
     Dates: start: 20220909

REACTIONS (3)
  - Acute chest syndrome [Recovered/Resolved]
  - Anaphylactic reaction [Recovered/Resolved]
  - Sickle cell anaemia with crisis [Recovered/Resolved]

NARRATIVE: CASE EVENT DATE: 20220908
